FAERS Safety Report 21496686 (Version 1)
Quarter: 2022Q4

REPORT INFORMATION
  Report Type: Spontaneous
  Country: US (occurrence: US)
  Receive Date: 20221022
  Receipt Date: 20221022
  Transmission Date: 20230112
  Serious: No
  Sender: FDA-Public Use
  Company Number: US-NOVARTISTESTPH-NVSC2022US238169

PATIENT
  Sex: Female

DRUGS (2)
  1. VOTRIENT [Suspect]
     Active Substance: PAZOPANIB HYDROCHLORIDE
     Indication: Bone neoplasm
     Dosage: 800 MG, QD
     Route: 065
     Dates: start: 20220920
  2. VOTRIENT [Suspect]
     Active Substance: PAZOPANIB HYDROCHLORIDE
     Indication: Infertility female

REACTIONS (6)
  - Skin discolouration [Unknown]
  - Diarrhoea [Unknown]
  - Hair colour changes [Unknown]
  - Erythema [Unknown]
  - Skin irritation [Unknown]
  - Product use in unapproved indication [Unknown]
